FAERS Safety Report 8304384-3 (Version None)
Quarter: 2012Q2

REPORT INFORMATION
  Report Type: 
  Country: None (occurrence: None)
  Receive Date: 20120423
  Receipt Date: 20120409
  Transmission Date: 20120825
  Serious: No
  Sender: FDA-Public Use
  Company Number: US-ELI_LILLY_AND_COMPANY-US201201008139

PATIENT
  Age: 47 Year
  Sex: Female
  Weight: 54.4 kg

DRUGS (3)
  1. CYMBALTA [Suspect]
     Indication: PAIN
     Dosage: 90 MG, QD
  2. HUMIRA [Concomitant]
     Indication: RHEUMATOID ARTHRITIS
  3. ORENCIA [Concomitant]
     Indication: RHEUMATOID ARTHRITIS

REACTIONS (1)
  - MOUTH ULCERATION [None]
